FAERS Safety Report 9123785 (Version 1)
Quarter: 2013Q1

REPORT INFORMATION
  Report Type: Spontaneous
  Country: US (occurrence: US)
  Receive Date: 20130115
  Receipt Date: 20130115
  Transmission Date: 20140127
  Serious: No
  Sender: FDA-Public Use
  Company Number: US-JNJFOC-20130102336

PATIENT
  Sex: Female
  Weight: 50.8 kg

DRUGS (3)
  1. DURAGESIC [Suspect]
     Indication: INTERVERTEBRAL DISC DISORDER
     Route: 062
     Dates: start: 2001
  2. DURAGESIC [Suspect]
     Indication: FATIGUE
     Route: 062
     Dates: start: 2001
  3. DURAGESIC [Suspect]
     Indication: FIBROMYALGIA
     Route: 062
     Dates: start: 2001

REACTIONS (2)
  - Malaise [Recovering/Resolving]
  - Drug dose omission [Unknown]
